FAERS Safety Report 4304206-1 (Version None)
Quarter: 2004Q1

REPORT INFORMATION
  Report Type: 
  Country: None (occurrence: None)
  Receive Date: 20040224
  Receipt Date: 20040209
  Transmission Date: 20041129
  Serious: Yes (Other)
  Sender: FDA-Public Use
  Company Number: US-JNJFOC-20031203204

PATIENT
  Age: 62 Year
  Sex: Male

DRUGS (7)
  1. REMICADE [Suspect]
     Indication: RHEUMATOID ARTHRITIS
     Dosage: INTRAVENOUS
     Route: 042
     Dates: start: 20030101
  2. METHOTREXATE [Concomitant]
  3. FOLIC ACID [Concomitant]
  4. REMERON [Concomitant]
  5. PROTONIX [Concomitant]
  6. FANAFLEX (ALL OTHER THERAPEUTIC PRODUCTS) [Concomitant]
  7. BEXTRA [Concomitant]

REACTIONS (10)
  - CHEST PAIN [None]
  - DEEP VEIN THROMBOSIS [None]
  - GUILLAIN-BARRE SYNDROME [None]
  - LEUKOPENIA [None]
  - LUPUS-LIKE SYNDROME [None]
  - OTITIS EXTERNA [None]
  - PERICARDITIS [None]
  - PLEURAL EFFUSION [None]
  - SLEEP APNOEA SYNDROME [None]
  - URINARY TRACT INFECTION [None]
